FAERS Safety Report 4636389-8 (Version None)
Quarter: 2005Q2

REPORT INFORMATION
  Report Type: 
  Country: None (occurrence: None)
  Receive Date: 20050413
  Receipt Date: 20050413
  Transmission Date: 20051028
  Serious: Yes (Other)
  Sender: FDA-Public Use
  Company Number: None

PATIENT
  Age: 83 Year
  Sex: Male
  Weight: 236 kg

DRUGS (1)
  1. FLOMAX [Suspect]
     Indication: BENIGN PROSTATIC HYPERPLASIA
     Dosage: 1 DAY ORAL
     Route: 048

REACTIONS (4)
  - CATARACT OPERATION COMPLICATION [None]
  - HYPOTONIA [None]
  - IRIS DISORDER [None]
  - MIOSIS [None]
